FAERS Safety Report 10191358 (Version 1)
Quarter: 2014Q2

REPORT INFORMATION
  Report Type: Spontaneous
  Country: DE (occurrence: None)
  Receive Date: 20140521
  Receipt Date: 20140521
  Transmission Date: 20141212
  Serious: Yes (Congenital Anomaly, Other)
  Sender: FDA-Public Use
  Company Number: AUR-APL-2014-05898

PATIENT
  Sex: Male
  Weight: .79 kg

DRUGS (5)
  1. LAMOTRIGINE [Suspect]
     Indication: EPILEPSY
     Dosage: 200 MG (100 MG, 2 IN 1 D)
     Route: 064
     Dates: start: 20121208, end: 20130601
  2. FOLSAEURE [Suspect]
     Indication: PROPHYLAXIS OF NEURAL TUBE DEFECT
     Dosage: 5 MG, 1 D
     Route: 064
     Dates: start: 20121208, end: 20130529
  3. PENHEXAL (PHENOXYMETHYLPENICILLIN POTASSIUM) [Concomitant]
  4. MIFEGYNE [Concomitant]
  5. CYTOTEC [Concomitant]

REACTIONS (8)
  - Maternal drugs affecting foetus [None]
  - Ventricular septal defect [None]
  - Congenital tricuspid valve atresia [None]
  - Congenital pulmonary valve atresia [None]
  - Double outlet right ventricle [None]
  - Patent ductus arteriosus [None]
  - Congenital cardiovascular anomaly [None]
  - Abortion induced [None]
